FAERS Safety Report 12281821 (Version 3)
Quarter: 2016Q4

REPORT INFORMATION
  Report Type: Spontaneous
  Country: US (occurrence: US)
  Receive Date: 20160419
  Receipt Date: 20161011
  Transmission Date: 20170207
  Serious: No
  Sender: FDA-Public Use
  Company Number: US-TEVA-643918USA

PATIENT
  Age: 44 Year
  Sex: Female

DRUGS (1)
  1. ZECUITY [Suspect]
     Active Substance: SUMATRIPTAN SUCCINATE
     Indication: HEADACHE
     Route: 062
     Dates: start: 20160309, end: 20160309

REACTIONS (8)
  - Drug effect incomplete [Unknown]
  - Product physical issue [Unknown]
  - Product leakage [Unknown]
  - Application site paraesthesia [Recovered/Resolved]
  - Incorrect drug administration duration [Unknown]
  - Wrong technique in product usage process [Unknown]
  - Application site erythema [Recovered/Resolved]
  - Application site irritation [Recovered/Resolved]

NARRATIVE: CASE EVENT DATE: 20160309
